FAERS Safety Report 9915785 (Version 1)
Quarter: 2014Q1

REPORT INFORMATION
  Report Type: Spontaneous
  Country: FR (occurrence: None)
  Receive Date: 20140218
  Receipt Date: 20140218
  Transmission Date: 20141002
  Serious: Yes (Other)
  Sender: FDA-Public Use
  Company Number: 2014FR0053

PATIENT
  Age: 50 Year
  Sex: Male

DRUGS (1)
  1. KINERET (ANAKINRA), NOT AVAILABLE [Suspect]
     Indication: RHEUMATOID ARTHRITIS

REACTIONS (2)
  - Hepatocellular injury [None]
  - Pyrexia [None]
